FAERS Safety Report 25832822 (Version 1)
Quarter: 2025Q3

REPORT INFORMATION
  Report Type: Spontaneous
  Country: US (occurrence: None)
  Receive Date: 20250922
  Receipt Date: 20250922
  Transmission Date: 20251020
  Serious: Yes (Hospitalization)
  Sender: FDA-CTU
  Company Number: None

PATIENT
  Age: 84 Year
  Sex: Female
  Weight: 70.9 kg

DRUGS (20)
  1. HUMIRA [Suspect]
     Active Substance: ADALIMUMAB
     Indication: Rheumatoid arthritis
     Dosage: OTHER FREQUENCY : EVERY 2 WEEKS;?
     Route: 058
     Dates: start: 20250530
  2. AMLODIPINE [Concomitant]
     Active Substance: AMLODIPINE BESYLATE
  3. CALCIUM CARBONATE [Concomitant]
     Active Substance: CALCIUM CARBONATE
  4. CLONIDINE [Concomitant]
     Active Substance: CLONIDINE
  5. CLOPIDOGREL [Concomitant]
     Active Substance: CLOPIDOGREL BISULFATE
  6. CYANOCOBALAMIN [Concomitant]
     Active Substance: CYANOCOBALAMIN
  7. DICLOFENAC [Concomitant]
     Active Substance: DICLOFENAC
  8. FERROUS SULFATE [Concomitant]
     Active Substance: FERROUS SULFATE
  9. FOLIC ACID [Concomitant]
     Active Substance: FOLIC ACID
  10. GLIMEPIRIDE [Concomitant]
     Active Substance: GLIMEPIRIDE
  11. HYDROCODONE BITARTRATE AND ACETAMINOPHEN [Concomitant]
     Active Substance: ACETAMINOPHEN\HYDROCODONE BITARTRATE
  12. INDAPAMIDE [Concomitant]
     Active Substance: INDAPAMIDE
  13. LATUDA [Concomitant]
     Active Substance: LURASIDONE HYDROCHLORIDE
  14. LEVOTHYROXINE [Concomitant]
     Active Substance: LEVOTHYROXINE
  15. LOSARTAN [Concomitant]
     Active Substance: LOSARTAN
  16. METHOTREXATE [Concomitant]
     Active Substance: METHOTREXATE
  17. multvitamin [Concomitant]
  18. OXCARBAZEPINE [Concomitant]
     Active Substance: OXCARBAZEPINE
  19. POTASSIUM [Concomitant]
     Active Substance: POTASSIUM
  20. TIZANIDINE [Concomitant]
     Active Substance: TIZANIDINE

REACTIONS (3)
  - Fall [None]
  - Fracture [None]
  - Back disorder [None]

NARRATIVE: CASE EVENT DATE: 20250910
